FAERS Safety Report 6302395-0 (Version None)
Quarter: 2009Q3

REPORT INFORMATION
  Report Type: 
  Country: None (occurrence: None)
  Receive Date: 20090810
  Receipt Date: 20090728
  Transmission Date: 20100115
  Serious: Yes (Death)
  Sender: FDA-Public Use
  Company Number: US-JNJFOC-20090607142

PATIENT
  Sex: Female
  Weight: 113.4 kg

DRUGS (6)
  1. REMICADE [Suspect]
     Dosage: PATIENT RECEIVED A TOTAL OF TWO DOSES
     Route: 042
  2. REMICADE [Suspect]
     Indication: COLITIS ULCERATIVE
     Dosage: PATIENT RECEIVED A TOTAL OF TWO DOSES
     Route: 042
  3. ASCORBIC ACID [Concomitant]
  4. MULTIPLE VITAMINS [Concomitant]
  5. ALBUTEROL [Concomitant]
  6. IPRATROPIUM BROMIDE [Concomitant]

REACTIONS (12)
  - BACTERIAL CULTURE POSITIVE [None]
  - COLITIS ULCERATIVE [None]
  - DEEP VEIN THROMBOSIS [None]
  - DIASTOLIC DYSFUNCTION [None]
  - OEDEMA [None]
  - PLEURAL EFFUSION [None]
  - PNEUMONIA [None]
  - PNEUMOTHORAX [None]
  - PROTEUS INFECTION [None]
  - PULMONARY EMBOLISM [None]
  - PULMONARY INFARCTION [None]
  - STAPHYLOCOCCAL INFECTION [None]
